FAERS Safety Report 18506839 (Version 1)
Quarter: 2020Q4

REPORT INFORMATION
  Report Type: Spontaneous
  Country: CN (occurrence: CN)
  Receive Date: 20201116
  Receipt Date: 20201116
  Transmission Date: 20210114
  Serious: Yes (Other)
  Sender: FDA-Public Use
  Company Number: CN-BAYER-2020-242397

PATIENT
  Age: 38 Year
  Sex: Male
  Weight: 50 kg

DRUGS (4)
  1. RIFAPENTINE [Concomitant]
     Active Substance: RIFAPENTINE
  2. AVELOX [Suspect]
     Active Substance: MOXIFLOXACIN HYDROCHLORIDE
     Indication: TUBERCULOSIS OF GENITOURINARY SYSTEM
     Dosage: 0.4 G, QD
     Route: 048
     Dates: start: 20200925, end: 20200929
  3. ISONIAZID AMINOSALICYLATE [Concomitant]
  4. ETHAMBUTOL [Concomitant]
     Active Substance: ETHAMBUTOL HYDROCHLORIDE

REACTIONS (10)
  - Delirium [None]
  - Product use in unapproved indication [None]
  - Off label use [None]
  - Dysphoria [Recovered/Resolved]
  - Palpitations [Recovered/Resolved]
  - Hallucination, auditory [Recovered/Resolved]
  - Heart rate increased [Recovered/Resolved]
  - Dyskinesia [Recovered/Resolved]
  - Chest discomfort [Recovered/Resolved]
  - Asthenia [Recovered/Resolved]

NARRATIVE: CASE EVENT DATE: 20200925
